FAERS Safety Report 6653079-0 (Version None)
Quarter: 2010Q1

REPORT INFORMATION
  Report Type: 
  Country: None (occurrence: None)
  Receive Date: 20100326
  Receipt Date: 20100318
  Transmission Date: 20100710
  Serious: Yes (Other)
  Sender: FDA-Public Use
  Company Number: PHHY2010TW16214

PATIENT
  Sex: Male

DRUGS (2)
  1. LESCOL XL [Suspect]
     Dosage: ONE TABLET, TWICE A DAY
     Route: 048
  2. LESCOL XL [Suspect]
     Dosage: HALF TABLET
     Route: 048

REACTIONS (5)
  - BACK PAIN [None]
  - CEREBROVASCULAR ACCIDENT [None]
  - CHEST PAIN [None]
  - INCORRECT DOSE ADMINISTERED [None]
  - MUSCULOSKELETAL CHEST PAIN [None]
